FAERS Safety Report 15879950 (Version 1)
Quarter: 2019Q1

REPORT INFORMATION
  Report Type: Spontaneous
  Country: US (occurrence: US)
  Receive Date: 20190128
  Receipt Date: 20190128
  Transmission Date: 20190417
  Serious: Yes (Disabling)
  Sender: FDA-Public Use
  Company Number: None

PATIENT
  Age: 36 Year
  Sex: Female
  Weight: 79.38 kg

DRUGS (3)
  1. MULTIVITAMIN [Concomitant]
     Active Substance: VITAMINS
  2. VITAMIN D [Concomitant]
     Active Substance: CHOLECALCIFEROL
  3. MIRENA [Suspect]
     Active Substance: LEVONORGESTREL

REACTIONS (5)
  - Paraesthesia [None]
  - Dizziness [None]
  - Pain [None]
  - Hypoaesthesia [None]
  - Nausea [None]
